FAERS Safety Report 5042069-X (Version None)
Quarter: 2006Q2

REPORT INFORMATION
  Report Type: 
  Country: None (occurrence: None)
  Receive Date: 20060630
  Receipt Date: 20060620
  Transmission Date: 20061013
  Serious: Yes (Other)
  Sender: FDA-Public Use
  Company Number: 2006076856

PATIENT
  Age: 80 Year
  Sex: Male

DRUGS (2)
  1. CARDURA [Suspect]
     Indication: PROSTATIC DISORDER
     Dosage: 4 MG (4 MG, FREQUENCY:  1X/DAY INTERVAL:  EVERYDAY), ORAL
     Route: 048
     Dates: start: 20060601, end: 20060601
  2. CAPTOPRIL [Concomitant]

REACTIONS (2)
  - BLOOD PRESSURE DECREASED [None]
  - SYNCOPE [None]
